FAERS Safety Report 9829695 (Version 2)
Quarter: 2014Q1

REPORT INFORMATION
  Report Type: Spontaneous
  Country: FR (occurrence: FR)
  Receive Date: 20140120
  Receipt Date: 20140219
  Transmission Date: 20141002
  Serious: Yes (Life-Threatening)
  Sender: FDA-Public Use
  Company Number: FR-MERCK-1401FRA006730

PATIENT
  Age: 43 Year
  Sex: Male

DRUGS (5)
  1. INVANZ [Suspect]
     Dosage: UNK
     Route: 042
     Dates: start: 20131109
  2. CANCIDAS [Suspect]
     Dosage: UNK
     Route: 042
     Dates: start: 20131109
  3. SEROPRAM [Suspect]
     Dosage: UNK
     Route: 042
     Dates: start: 20131209, end: 20131210
  4. PIPERACILLIN SODIUM (+) TAZOBACTAM SODIUM [Suspect]
     Dosage: UNK
     Route: 042
     Dates: start: 20131109
  5. TRIFLUCAN [Suspect]
     Dosage: UNK
     Route: 048
     Dates: start: 20131109

REACTIONS (1)
  - Atrioventricular block [Recovered/Resolved]
